FAERS Safety Report 6738926-6 (Version None)
Quarter: 2010Q2

REPORT INFORMATION
  Report Type: 
  Country: None (occurrence: None)
  Receive Date: 20100521
  Receipt Date: 20100507
  Transmission Date: 20101027
  Serious: Yes (Other)
  Sender: FDA-Public Use
  Company Number: 2009S1006018

PATIENT
  Age: 67 Year
  Sex: Female

DRUGS (4)
  1. PHOSPHOSODA FLAVOR NOT SPECIFIED [Suspect]
     Indication: COLONOSCOPY
     Dosage: 90 ML;TOTAL;PO
     Route: 048
     Dates: start: 20080610, end: 20080610
  2. INSULIN [Concomitant]
  3. METFORMIN HYDROCHLORIDE [Concomitant]
  4. FOSAMAX [Concomitant]

REACTIONS (1)
  - RENAL FAILURE CHRONIC [None]
